FAERS Safety Report 4284336-3 (Version None)
Quarter: 2004Q1

REPORT INFORMATION
  Report Type: 
  Country: None (occurrence: None)
  Receive Date: 20040130
  Receipt Date: 20040108
  Transmission Date: 20041129
  Serious: Yes (Hospitalization)
  Sender: FDA-Public Use
  Company Number: GBS030212561

PATIENT
  Age: 5 Year
  Sex: Female

DRUGS (9)
  1. CEFTAZIDIME PENTAHYDRATE [Suspect]
     Indication: CYSTIC FIBROSIS
     Dosage: 50 MG/KG/ 3 DAY
  2. GENTAMICIN [Concomitant]
  3. COLISTIN SULFATE [Concomitant]
  4. FLUTICASONE PROPIONATE [Concomitant]
  5. SALBUTAMOL [Concomitant]
  6. MULTI-VITAMINS [Concomitant]
  7. PANCREATIC ENZYMES [Concomitant]
  8. CIPROFLOXACIN [Concomitant]
  9. FLUCLOXACILLIN SODIUM [Concomitant]

REACTIONS (6)
  - DRUG INTERACTION [None]
  - DRUG LEVEL INCREASED [None]
  - HAEMODIALYSIS [None]
  - NEPHRITIS INTERSTITIAL [None]
  - RENAL FAILURE ACUTE [None]
  - RENAL TUBULAR NECROSIS [None]
